FAERS Safety Report 4865633-7 (Version None)
Quarter: 2005Q4

REPORT INFORMATION
  Report Type: 
  Country: None (occurrence: None)
  Receive Date: 20051220
  Receipt Date: 20051207
  Transmission Date: 20060501
  Serious: Yes (Other)
  Sender: FDA-Public Use
  Company Number: 2005165478

PATIENT
  Sex: Male
  Weight: 99.3377 kg

DRUGS (4)
  1. VIAGRA [Suspect]
     Indication: ERECTILE DYSFUNCTION
     Dosage: AS NECESSARY, ORAL
     Route: 048
  2. MINOXIDIL [Concomitant]
  3. PREDNISONE TAB [Concomitant]
  4. ANTIHYPERTENSIVES (ANTIHYPERTENSIVES) [Concomitant]

REACTIONS (2)
  - DRUG INEFFECTIVE [None]
  - HERNIA [None]
